FAERS Safety Report 4566471-5 (Version None)
Quarter: 2005Q1

REPORT INFORMATION
  Report Type: 
  Country: None (occurrence: None)
  Receive Date: 20050127
  Receipt Date: 20050127
  Transmission Date: 20050727
  Serious: Yes (Other)
  Sender: FDA-Public Use
  Company Number: None

PATIENT
  Age: 61 Year
  Sex: Female
  Weight: 58 kg

DRUGS (7)
  1. IRESSA [Suspect]
     Indication: LUNG NEOPLASM MALIGNANT
     Dosage: 250MG PO DAILY
     Route: 048
     Dates: start: 20050112
  2. FASLODEX [Suspect]
     Indication: LUNG NEOPLASM MALIGNANT
     Dosage: 500MG IM ONCE A DAY 1
     Dates: start: 20050112
  3. IBUPROFEN [Concomitant]
  4. TIAZAC [Concomitant]
  5. NITROGLYCERIN [Concomitant]
  6. LORAZEPAM [Concomitant]
  7. ZANTAC [Concomitant]

REACTIONS (2)
  - FATIGUE [None]
  - MEDICATION ERROR [None]
